FAERS Safety Report 7891511-5 (Version None)
Quarter: 2011Q4

REPORT INFORMATION
  Report Type: 
  Country: None (occurrence: None)
  Receive Date: 20111103
  Receipt Date: 20110804
  Transmission Date: 20120403
  Serious: No
  Sender: FDA-Public Use
  Company Number: US-AMGEN-USASP2011039555

PATIENT
  Age: 61 Year
  Sex: Female

DRUGS (4)
  1. LUNESTA [Concomitant]
     Dosage: 1 MG, UNK
  2. MEDROL [Concomitant]
     Dosage: 2 MG, UNK
  3. THYROID TAB [Concomitant]
     Dosage: 30 MG, UNK
  4. ENBREL [Suspect]
     Indication: RHEUMATOID ARTHRITIS
     Dosage: 50 MG, QWK
     Dates: start: 20110301, end: 20110722

REACTIONS (2)
  - ARTHRALGIA [None]
  - CUTANEOUS LUPUS ERYTHEMATOSUS [None]
